FAERS Safety Report 5780129-6 (Version None)
Quarter: 2008Q2

REPORT INFORMATION
  Report Type: 
  Country: None (occurrence: None)
  Receive Date: 20080620
  Receipt Date: 20080613
  Transmission Date: 20081010
  Serious: Yes (Other)
  Sender: FDA-Public Use
  Company Number: JP-ABBOTT-08P-087-0457964-00

PATIENT
  Age: 61 Year
  Sex: Male
  Weight: 52 kg

DRUGS (5)
  1. SEVOFLURANE [Suspect]
     Indication: GENERAL ANAESTHESIA
     Dosage: 1 %
     Route: 055
  2. THIAMYLAL SODIUM [Concomitant]
     Indication: ANAESTHESIA
     Route: 065
  3. SUXAMETHONIUM CHLORIDE [Concomitant]
     Indication: ANAESTHESIA
     Route: 065
  4. VECURONIUM BROMIDE [Concomitant]
     Indication: ANAESTHESIA
     Route: 065
  5. FENTANYL CITRATE [Concomitant]
     Indication: ANAESTHESIA
     Route: 065

REACTIONS (4)
  - DIPLEGIA [None]
  - EXTRADURAL ABSCESS [None]
  - GLOSSOPTOSIS [None]
  - RESPIRATION ABNORMAL [None]
